FAERS Safety Report 7929134-1 (Version None)
Quarter: 2011Q4

REPORT INFORMATION
  Report Type: 
  Country: None (occurrence: None)
  Receive Date: 20111119
  Receipt Date: 20111107
  Transmission Date: 20120403
  Serious: Yes (Other)
  Sender: FDA-Public Use
  Company Number: US-ELI_LILLY_AND_COMPANY-US201109007955

PATIENT
  Sex: Female
  Weight: 76.644 kg

DRUGS (2)
  1. FORTEO [Suspect]
     Indication: OSTEOPOROSIS
     Dosage: 20 UG, QD
     Route: 058
  2. FORTEO [Suspect]
     Dosage: 20 UG, QD
     Route: 058

REACTIONS (5)
  - DEEP VEIN THROMBOSIS [None]
  - ALOPECIA [None]
  - TENDERNESS [None]
  - PAIN [None]
  - ERYTHEMA [None]
